FAERS Safety Report 10259873 (Version 1)
Quarter: 2014Q2

REPORT INFORMATION
  Report Type: Spontaneous
  Country: JP (occurrence: JP)
  Receive Date: 20140625
  Receipt Date: 20140625
  Transmission Date: 20141212
  Serious: Yes (Hospitalization)
  Sender: FDA-Public Use
  Company Number: JP-GLAXOSMITHKLINE-B0994496A

PATIENT
  Age: 77 Year
  Sex: Female

DRUGS (3)
  1. VALTREX [Suspect]
     Indication: HERPES ZOSTER
     Dosage: 1000MG THREE TIMES PER DAY
     Route: 048
     Dates: start: 20140507, end: 20140511
  2. LYRICA [Concomitant]
     Route: 048
     Dates: start: 20140507, end: 20140510
  3. SODIUM VALPROATE [Concomitant]
     Indication: EPILEPSY
     Dosage: 300MG TWICE PER DAY
     Route: 048

REACTIONS (6)
  - Altered state of consciousness [Recovered/Resolved]
  - Toxicity to various agents [Unknown]
  - Somnolence [Recovering/Resolving]
  - Extensor plantar response [Unknown]
  - Renal disorder [Unknown]
  - Overdose [Unknown]
